FAERS Safety Report 9249157 (Version 3)
Quarter: 2013Q2

REPORT INFORMATION
  Report Type: Spontaneous
  Country: US (occurrence: US)
  Receive Date: 20130423
  Receipt Date: 20130606
  Transmission Date: 20140414
  Serious: Yes (Death, Hospitalization)
  Sender: FDA-Public Use
  Company Number: US-BAXTER-2013BAX014354

PATIENT
  Age: 89 Year
  Sex: Male

DRUGS (3)
  1. DIANEAL LOW CALCIUM [Suspect]
     Indication: PERITONEAL DIALYSIS
     Route: 033
     Dates: end: 2013
  2. DIANEAL LOW CALCIUM [Suspect]
     Indication: PERITONEAL DIALYSIS
     Route: 033
     Dates: end: 2013
  3. DIANEAL LOW CALCIUM [Suspect]
     Indication: PERITONEAL DIALYSIS
     Route: 033
     Dates: end: 2013

REACTIONS (5)
  - Respiratory failure [Fatal]
  - Cardiac disorder [Fatal]
  - Pleural effusion [Recovering/Resolving]
  - Asthenia [Recovering/Resolving]
  - Dyspnoea [Recovering/Resolving]
